FAERS Safety Report 10705738 (Version 2)
Quarter: 2015Q1

REPORT INFORMATION
  Report Type: Report from Study
  Country: UG (occurrence: UG)
  Receive Date: 20150112
  Receipt Date: 20150115
  Transmission Date: 20150721
  Serious: Yes (Death, Life-Threatening, Other)
  Sender: FDA-Public Use
  Company Number: UG-GLAXOSMITHKLINE-UG2014GSK046238

PATIENT

DRUGS (8)
  1. LAMIVUDINE. [Suspect]
     Active Substance: LAMIVUDINE
     Dosage: UNK
     Dates: start: 20141217, end: 20141224
  2. EFAVIRENZ [Suspect]
     Active Substance: EFAVIRENZ
     Dosage: UNK
     Dates: start: 20141217, end: 20141224
  3. AMPICLOX [Concomitant]
     Dosage: UNK
     Dates: start: 20141209, end: 20141213
  4. ACICLOVIR [Concomitant]
     Active Substance: ACYCLOVIR
     Dosage: UNK
     Dates: start: 20141209, end: 20141215
  5. ZIDOVUDINE. [Suspect]
     Active Substance: ZIDOVUDINE
     Dosage: UNK
     Dates: start: 20141217, end: 20141224
  6. FLUCONAZOLE. [Concomitant]
     Active Substance: FLUCONAZOLE
  7. FEFOL [Concomitant]
     Active Substance: FERROUS SULFATE\FOLIC ACID
  8. COTRIMOXAZOLE [Suspect]
     Active Substance: SULFAMETHOXAZOLE\TRIMETHOPRIM
     Dosage: UNK
     Dates: start: 20140227, end: 20141224

REACTIONS (7)
  - Hepatotoxicity [Fatal]
  - Blood bilirubin increased [Fatal]
  - Blood creatinine increased [Fatal]
  - Neutropenia [Fatal]
  - Candida infection [Fatal]
  - Bronchopneumonia [Fatal]
  - Haemoptysis [Fatal]

NARRATIVE: CASE EVENT DATE: 20141210
